FAERS Safety Report 21437679 (Version 1)
Quarter: 2022Q4

REPORT INFORMATION
  Report Type: Spontaneous
  Country: US (occurrence: US)
  Receive Date: 20221011
  Receipt Date: 20221011
  Transmission Date: 20230112
  Serious: Yes (Other)
  Sender: FDA-Public Use
  Company Number: US-SUN PHARMACEUTICAL INDUSTRIES LTD-2022R1-357809

PATIENT
  Age: 19 Year
  Sex: Male

DRUGS (21)
  1. AMPHOTERICIN B [Suspect]
     Active Substance: AMPHOTERICIN B
     Indication: Multiple organ dysfunction syndrome
     Dosage: UNK
     Route: 065
  2. AMPHOTERICIN B [Suspect]
     Active Substance: AMPHOTERICIN B
     Indication: Respiratory failure
  3. AMPHOTERICIN B [Suspect]
     Active Substance: AMPHOTERICIN B
     Indication: Septic shock
  4. SULFAMETHOXAZOLE\TRIMETHOPRIM [Suspect]
     Active Substance: SULFAMETHOXAZOLE\TRIMETHOPRIM
     Indication: Multiple organ dysfunction syndrome
     Dosage: UNK
     Route: 065
  5. SULFAMETHOXAZOLE\TRIMETHOPRIM [Suspect]
     Active Substance: SULFAMETHOXAZOLE\TRIMETHOPRIM
     Indication: Septic shock
  6. SULFAMETHOXAZOLE\TRIMETHOPRIM [Suspect]
     Active Substance: SULFAMETHOXAZOLE\TRIMETHOPRIM
     Indication: Respiratory failure
  7. GENTAMICIN [Suspect]
     Active Substance: GENTAMICIN
     Indication: Multiple organ dysfunction syndrome
     Dosage: UNK
     Route: 065
  8. GENTAMICIN [Suspect]
     Active Substance: GENTAMICIN
     Indication: Septic shock
  9. GENTAMICIN [Suspect]
     Active Substance: GENTAMICIN
     Indication: Respiratory failure
  10. MEROPENEM [Suspect]
     Active Substance: MEROPENEM
     Indication: Multiple organ dysfunction syndrome
     Dosage: UNK
     Route: 065
  11. MEROPENEM [Suspect]
     Active Substance: MEROPENEM
     Indication: Respiratory failure
  12. MEROPENEM [Suspect]
     Active Substance: MEROPENEM
     Indication: Septic shock
  13. ALBENDAZOLE [Suspect]
     Active Substance: ALBENDAZOLE
     Indication: Multiple organ dysfunction syndrome
     Dosage: UNK
     Route: 065
  14. ALBENDAZOLE [Suspect]
     Active Substance: ALBENDAZOLE
     Indication: Respiratory failure
  15. ALBENDAZOLE [Suspect]
     Active Substance: ALBENDAZOLE
     Indication: Septic shock
  16. CIDOFOVIR [Suspect]
     Active Substance: CIDOFOVIR
     Indication: Multiple organ dysfunction syndrome
     Dosage: UNK
     Route: 065
  17. CIDOFOVIR [Suspect]
     Active Substance: CIDOFOVIR
     Indication: Respiratory failure
  18. CIDOFOVIR [Suspect]
     Active Substance: CIDOFOVIR
     Indication: Septic shock
  19. IVERMECTIN [Suspect]
     Active Substance: IVERMECTIN
     Indication: Multiple organ dysfunction syndrome
     Dosage: UNK
     Route: 065
  20. IVERMECTIN [Suspect]
     Active Substance: IVERMECTIN
     Indication: Respiratory failure
  21. IVERMECTIN [Suspect]
     Active Substance: IVERMECTIN
     Indication: Septic shock

REACTIONS (3)
  - Therapy non-responder [Unknown]
  - Hepatic failure [Unknown]
  - Coagulopathy [Unknown]
